FAERS Safety Report 8558322-9 (Version None)
Quarter: 2012Q3

REPORT INFORMATION
  Report Type: 
  Country: None (occurrence: None)
  Receive Date: 20120801
  Receipt Date: 20120706
  Transmission Date: 20120928
  Serious: No
  Sender: FDA-Public Use
  Company Number: US-ASTRAZENECA-2012SE46568

PATIENT
  Age: 59 Year
  Sex: Female
  Weight: 50.8 kg

DRUGS (3)
  1. RHINOCORT [Suspect]
     Dosage: 1 SPRAY DAILY
     Route: 045
     Dates: start: 20120101
  2. BUDESONIDE [Suspect]
     Indication: RHINITIS
     Dosage: 1 SPRAY DAILY
     Route: 045
     Dates: start: 20110101, end: 20120101
  3. RHINOCORT [Suspect]
     Indication: RHINITIS
     Route: 045
     Dates: start: 20000101, end: 20110101

REACTIONS (5)
  - ACTIVITIES OF DAILY LIVING IMPAIRED [None]
  - DIZZINESS [None]
  - INTENTIONAL DRUG MISUSE [None]
  - PAIN IN EXTREMITY [None]
  - ARTHRITIS [None]
